FAERS Safety Report 12508053 (Version 1)
Quarter: 2016Q2

REPORT INFORMATION
  Report Type: Spontaneous
  Country: US (occurrence: US)
  Receive Date: 20160629
  Receipt Date: 20160629
  Transmission Date: 20160815
  Serious: Yes (Other)
  Sender: FDA-Public Use
  Company Number: US-BIOGEN-2016BI00257602

PATIENT
  Sex: Female

DRUGS (1)
  1. TYSABRI [Suspect]
     Active Substance: NATALIZUMAB
     Indication: MULTIPLE SCLEROSIS
     Route: 065
     Dates: start: 20160301

REACTIONS (14)
  - Dizziness [Unknown]
  - Heart rate increased [Unknown]
  - Uterine spasm [Unknown]
  - Urticaria [Unknown]
  - Muscle spasms [Unknown]
  - Throat tightness [Unknown]
  - Chest discomfort [Unknown]
  - Gastrointestinal pain [Unknown]
  - Painful respiration [Unknown]
  - Flushing [Unknown]
  - Blood pressure increased [Unknown]
  - Respiratory distress [Unknown]
  - Oxygen saturation decreased [Unknown]
  - Nausea [Unknown]
